FAERS Safety Report 7098578-5 (Version None)
Quarter: 2010Q4

REPORT INFORMATION
  Report Type: 
  Country: None (occurrence: None)
  Receive Date: 20101112
  Receipt Date: 20101109
  Transmission Date: 20110411
  Serious: Yes (Other)
  Sender: FDA-Public Use
  Company Number: CHPA2010JP16553

PATIENT
  Sex: Male

DRUGS (1)
  1. NICOTINELL TTS (NCH) [Suspect]
     Indication: SMOKING CESSATION THERAPY
     Dosage: 35 MG, ONCE/SINGLE
     Route: 062
     Dates: start: 20101017, end: 20101017

REACTIONS (6)
  - ARTHRALGIA [None]
  - CHOKING SENSATION [None]
  - FORMICATION [None]
  - OVERDOSE [None]
  - PYREXIA [None]
  - TREATMENT NONCOMPLIANCE [None]
